FAERS Safety Report 5875653-1 (Version None)
Quarter: 2008Q3

REPORT INFORMATION
  Report Type: 
  Country: None (occurrence: None)
  Receive Date: 20080905
  Receipt Date: 20080820
  Transmission Date: 20090109
  Serious: Yes (Hospitalization)
  Sender: FDA-Public Use
  Company Number: 2008AL005699

PATIENT
  Age: 62 Year
  Sex: Male

DRUGS (6)
  1. DIGOXIN [Suspect]
     Indication: ATRIAL FIBRILLATION
     Dosage: 0.25MG, 1/2 TAB PO, DAILY
     Route: 048
     Dates: start: 20070703
  2. CARDIZEM [Concomitant]
  3. ADVAIR DISKUS 100/50 [Concomitant]
  4. SPIRIVA [Concomitant]
  5. ALBUTEROL [Concomitant]
  6. WEEKLY INFUSION OF PROTEIN BLOOD PRODUCT FOR EMPHYSEMA (PROTASTIN) [Concomitant]

REACTIONS (3)
  - BRADYCARDIA [None]
  - DIZZINESS [None]
  - NAUSEA [None]
